FAERS Safety Report 8228962-5 (Version None)
Quarter: 2012Q1

REPORT INFORMATION
  Report Type: 
  Country: None (occurrence: None)
  Receive Date: 20120322
  Receipt Date: 20120314
  Transmission Date: 20120608
  Serious: Yes (Hospitalization)
  Sender: FDA-Public Use
  Company Number: IN-COVIDIEN/TYCO HEALTHCARE/MALLINCKRODT-T201201092

PATIENT
  Age: 73 Year
  Sex: Female

DRUGS (1)
  1. OPTIRAY 160 [Suspect]
     Indication: COMPUTERISED TOMOGRAM HEAD
     Dosage: 40 ML, SINGLE
     Dates: start: 20120309, end: 20120309

REACTIONS (4)
  - VOMITING [None]
  - ANAPHYLACTOID REACTION [None]
  - CHILLS [None]
  - BLOOD PRESSURE DECREASED [None]
